FAERS Safety Report 11395004 (Version 1)
Quarter: 2015Q3

REPORT INFORMATION
  Report Type: Spontaneous
  Country: US (occurrence: None)
  Receive Date: 20150817
  Receipt Date: 20150817
  Transmission Date: 20151125
  Serious: Yes (Other)
  Sender: FDA-Public Use
  Company Number: 3005174370-2015-00053

PATIENT
  Sex: Female

DRUGS (1)
  1. CLINPRO 5000 [Suspect]
     Active Substance: SODIUM FLUORIDE

REACTIONS (3)
  - Pneumonia [None]
  - Respiratory disorder [None]
  - Pharyngeal disorder [None]
